APPROVED DRUG PRODUCT: DILTIAZEM HYDROCHLORIDE
Active Ingredient: DILTIAZEM HYDROCHLORIDE
Strength: 180MG
Dosage Form/Route: CAPSULE, EXTENDED RELEASE;ORAL
Application: N020939 | Product #002
Applicant: BIOVAIL LABORATORIES INC
Approved: Jan 28, 2000 | RLD: No | RS: No | Type: DISCN